FAERS Safety Report 8231802-1 (Version None)
Quarter: 2012Q1

REPORT INFORMATION
  Report Type: 
  Country: None (occurrence: None)
  Receive Date: 20120323
  Receipt Date: 20120314
  Transmission Date: 20120608
  Serious: Yes (Hospitalization)
  Sender: FDA-Public Use
  Company Number: PT-JNJFOC-20120308361

PATIENT
  Age: 8 Decade
  Sex: Male

DRUGS (4)
  1. PREDNISOLONE [Concomitant]
     Indication: PROSTATE CANCER
     Route: 065
  2. ZYTIGA [Suspect]
     Indication: PROSTATE CANCER
     Route: 048
  3. ZYTIGA [Suspect]
     Route: 048
  4. LHRH AGONIST [Concomitant]
     Indication: PROSTATE CANCER
     Route: 065

REACTIONS (1)
  - LOCALISED OEDEMA [None]
